FAERS Safety Report 7294907-8 (Version None)
Quarter: 2011Q1

REPORT INFORMATION
  Report Type: 
  Country: None (occurrence: None)
  Receive Date: 20110216
  Receipt Date: 20110208
  Transmission Date: 20110831
  Serious: Yes (Hospitalization)
  Sender: FDA-Public Use
  Company Number: JP-JNJFOC-20101100600

PATIENT
  Sex: Female
  Weight: 52 kg

DRUGS (7)
  1. DOXORUBICIN HCL [Suspect]
     Dosage: CYCLE 4
     Route: 042
  2. DOXORUBICIN HCL [Suspect]
     Dosage: CYCLE 1
     Route: 042
  3. HIRUDOID CREAM [Concomitant]
     Indication: PALMAR-PLANTAR ERYTHRODYSAESTHESIA SYNDROME
     Route: 061
  4. METHADERM [Concomitant]
     Indication: PALMAR-PLANTAR ERYTHRODYSAESTHESIA SYNDROME
     Route: 061
  5. DOXORUBICIN HCL [Suspect]
     Dosage: CYCLE 2
     Route: 042
  6. DOXORUBICIN HCL [Suspect]
     Indication: OVARIAN CANCER RECURRENT
     Dosage: CYCLE 5
     Route: 042
  7. DOXORUBICIN HCL [Suspect]
     Dosage: CYCLE 3
     Route: 042

REACTIONS (1)
  - ANGINA PECTORIS [None]
